FAERS Safety Report 6871196-7 (Version None)
Quarter: 2010Q3

REPORT INFORMATION
  Report Type: 
  Country: None (occurrence: None)
  Receive Date: 20100723
  Receipt Date: 20100715
  Transmission Date: 20110219
  Serious: Yes (Death)
  Sender: FDA-Public Use
  Company Number: CO-ROCHE-715445

PATIENT
  Age: 60 Year
  Sex: Male

DRUGS (3)
  1. AVASTIN [Suspect]
     Indication: COLORECTAL CANCER
     Route: 042
     Dates: start: 20080810, end: 20100601
  2. XELODA [Suspect]
     Indication: COLORECTAL CANCER
     Route: 048
     Dates: start: 20100518, end: 20100601
  3. MORPHINE [Concomitant]
     Indication: PAIN
     Dosage: PRN
     Route: 048

REACTIONS (2)
  - COLORECTAL CANCER [None]
  - DISEASE PROGRESSION [None]
